FAERS Safety Report 24936051 (Version 1)
Quarter: 2025Q1

REPORT INFORMATION
  Report Type: Spontaneous
  Country: AT (occurrence: AT)
  Receive Date: 20250206
  Receipt Date: 20250206
  Transmission Date: 20250408
  Serious: Yes (Other)
  Sender: EXELIXIS
  Company Number: AT-EXELIXIS-EXL-2024-001215

PATIENT
  Age: 52 Year
  Sex: Male

DRUGS (3)
  1. CABOMETYX [Suspect]
     Active Substance: CABOZANTINIB S-MALATE
     Indication: Papillary renal cell carcinoma
     Dates: start: 202111
  2. LENVATINIB [Suspect]
     Active Substance: LENVATINIB
     Indication: Papillary renal cell carcinoma
     Dates: start: 202307
  3. PEMBROLIZUMAB [Suspect]
     Active Substance: PEMBROLIZUMAB
     Indication: Papillary renal cell carcinoma
     Dates: start: 202307

REACTIONS (2)
  - Malignant neoplasm progression [Unknown]
  - Metastases to eye [Recovering/Resolving]

NARRATIVE: CASE EVENT DATE: 20230501
